FAERS Safety Report 6676229-9 (Version None)
Quarter: 2010Q2

REPORT INFORMATION
  Report Type: 
  Country: None (occurrence: None)
  Receive Date: 20100412
  Receipt Date: 20100408
  Transmission Date: 20101027
  Serious: Yes (Death)
  Sender: FDA-Public Use
  Company Number: NSADSS2001028886

PATIENT
  Sex: Male

DRUGS (10)
  1. LEVOFLOXACIN [Suspect]
     Indication: EXPOSURE TO COMMUNICABLE DISEASE
     Route: 048
     Dates: start: 20010731
  2. DIGOSIN [Concomitant]
     Indication: CARDIOMYOPATHY
     Route: 048
     Dates: start: 19940401
  3. LASIX [Concomitant]
     Indication: CARDIOMYOPATHY
     Route: 048
     Dates: start: 19940401
  4. CETAPRIL [Concomitant]
     Indication: CARDIOMYOPATHY
     Route: 048
     Dates: start: 19940401
  5. DIART [Concomitant]
     Indication: CARDIOMYOPATHY
     Route: 048
     Dates: start: 19970416
  6. ALLOPURINOL [Concomitant]
     Route: 048
     Dates: start: 19970701
  7. BUFFERIN [Concomitant]
     Indication: CARDIOMYOPATHY
     Route: 048
     Dates: start: 19980902
  8. PREDNISONE TAB [Concomitant]
     Indication: RHEUMATOID ARTHRITIS
     Route: 048
     Dates: start: 19990708
  9. ALFAROL [Concomitant]
     Indication: OSTEOPOROSIS
     Route: 048
     Dates: start: 19990708
  10. AZULFIDINE [Concomitant]
     Indication: RHEUMATOID ARTHRITIS
     Route: 048
     Dates: start: 20010703

REACTIONS (10)
  - APNOEA [None]
  - ASPIRATION [None]
  - BLOOD PRESSURE IMMEASURABLE [None]
  - CARDIOACTIVE DRUG LEVEL INCREASED [None]
  - HYPOPHAGIA [None]
  - ILEUS [None]
  - LEUKOCYTOCLASTIC VASCULITIS [None]
  - LOSS OF CONSCIOUSNESS [None]
  - PANCREATITIS HAEMORRHAGIC [None]
  - PERITONITIS [None]
